FAERS Safety Report 10681761 (Version 1)
Quarter: 2014Q4

REPORT INFORMATION
  Report Type: Spontaneous
  Country: FR (occurrence: FR)
  Receive Date: 20141230
  Receipt Date: 20141230
  Transmission Date: 20150529
  Serious: Yes (Hospitalization)
  Sender: FDA-Public Use
  Company Number: FR-009507513-1412FRA011534

PATIENT
  Age: 50 Year
  Sex: Male

DRUGS (3)
  1. METHYLPREDNISOLONE SODIUM SUCCINATE. [Suspect]
     Active Substance: METHYLPREDNISOLONE SODIUM SUCCINATE
     Dosage: TOTAL DAILY DOSE: 101.4 MG
     Route: 041
     Dates: start: 20141210, end: 20141210
  2. ERBITUX [Suspect]
     Active Substance: CETUXIMAB
     Dosage: TOTAL DAILY DOSE: 675MG
     Route: 041
     Dates: start: 20141210, end: 20141210
  3. POLARAMINE [Suspect]
     Active Substance: DEXCHLORPHENIRAMINE MALEATE
     Dosage: TOTAL DAILY DOSE: 5MG
     Route: 041
     Dates: start: 20141210, end: 20141210

REACTIONS (3)
  - Loss of consciousness [Recovered/Resolved]
  - Hypotension [Recovered/Resolved]
  - Cyanosis [Recovered/Resolved]

NARRATIVE: CASE EVENT DATE: 20141210
